FAERS Safety Report 10196963 (Version 1)
Quarter: 2014Q2

REPORT INFORMATION
  Report Type: Spontaneous
  Country: US (occurrence: US)
  Receive Date: 20140527
  Receipt Date: 20140527
  Transmission Date: 20141212
  Serious: Yes (Death)
  Sender: FDA-Public Use
  Company Number: US-PFIZER INC-2014143838

PATIENT
  Age: 65 Year
  Sex: Male
  Weight: 78.46 kg

DRUGS (5)
  1. VFEND [Suspect]
     Indication: ACUTE LEUKAEMIA
     Dosage: UNK, 2X/DAY
     Dates: start: 2014
  2. ACYCLOVIR [Concomitant]
     Dosage: UNK
  3. OMEPRAZOLE [Concomitant]
     Dosage: UNK
  4. AMOXICILLIN [Concomitant]
     Dosage: UNK
  5. TYLENOL [Concomitant]
     Dosage: UNK

REACTIONS (1)
  - Death [Fatal]
